FAERS Safety Report 9639126 (Version 1)
Quarter: 2013Q4

REPORT INFORMATION
  Report Type: Report from Study
  Country: US (occurrence: US)
  Receive Date: 20131022
  Receipt Date: 20131022
  Transmission Date: 20140711
  Serious: Yes (Hospitalization)
  Sender: FDA-Public Use
  Company Number: US-US-EMD SERONO, INC.-7244389

PATIENT
  Sex: Female

DRUGS (2)
  1. REBIF [Suspect]
     Indication: PRODUCT USED FOR UNKNOWN INDICATION
     Route: 058
     Dates: start: 20081023
  2. ADVIL                              /00109201/ [Concomitant]
     Indication: PREMEDICATION

REACTIONS (2)
  - Pyrexia [Unknown]
  - Convulsion [Recovered/Resolved]
